FAERS Safety Report 10682593 (Version 1)
Quarter: 2014Q4

REPORT INFORMATION
  Report Type: Spontaneous
  Country: US (occurrence: None)
  Receive Date: 20141224
  Receipt Date: 20141224
  Transmission Date: 20150529
  Serious: Yes (Other)
  Sender: FDA-Public Use
  Company Number: FK201406346

PATIENT
  Age: 75 Year
  Sex: Female

DRUGS (2)
  1. MIDAZOLAM [Concomitant]
     Active Substance: MIDAZOLAM\MIDAZOLAM HYDROCHLORIDE
  2. ROPIVACAINE (MANUFACTURER UNKNOWN) (ROPIVACAINE) (ROPIVACAINE) [Suspect]
     Active Substance: ROPIVACAINE
     Indication: GENERAL ANAESTHESIA
     Dosage: 30

REACTIONS (4)
  - Generalised tonic-clonic seizure [None]
  - Unresponsive to stimuli [None]
  - Memory impairment [None]
  - Musculoskeletal stiffness [None]
